FAERS Safety Report 16456443 (Version 2)
Quarter: 2019Q3

REPORT INFORMATION
  Report Type: Spontaneous
  Country: CA (occurrence: CA)
  Receive Date: 20190620
  Receipt Date: 20190801
  Transmission Date: 20191004
  Serious: Yes (Other)
  Sender: FDA-Public Use
  Company Number: CA-JNJFOC-20190534650

PATIENT
  Age: 50 Year
  Sex: Female
  Weight: 64.92 kg

DRUGS (11)
  1. GABAPENTIN. [Concomitant]
     Active Substance: GABAPENTIN
     Indication: ARTHRITIS
     Dosage: LAST TAKEN 12/JUN/2019
     Route: 065
  2. PANTOPRAZOLE [Concomitant]
     Active Substance: PANTOPRAZOLE
     Indication: GASTRIC DISORDER
     Dosage: LAST TAKEN 11/JUN/2019
     Route: 065
  3. SYMBICORT [Concomitant]
     Active Substance: BUDESONIDE\FORMOTEROL FUMARATE DIHYDRATE
     Indication: EMPHYSEMA
     Dosage: LAST TAKEN 12/JUN/2019
     Route: 065
  4. MIRTAZAPINE. [Concomitant]
     Active Substance: MIRTAZAPINE
     Indication: POST-TRAUMATIC STRESS DISORDER
     Dosage: LAST TAKEN 11/JUN/2019
     Route: 065
  5. VENLAFAXINE [Concomitant]
     Active Substance: VENLAFAXINE HYDROCHLORIDE
     Indication: POST-TRAUMATIC STRESS DISORDER
     Dosage: LAST TAKEN 12/JUN/2019
     Route: 065
  6. SALBUTAMOL [Concomitant]
     Active Substance: ALBUTEROL
     Indication: MULTIPLE ALLERGIES
     Dosage: 11/JUN/2019
     Route: 065
  7. REACTINE (CETIRIZINE DIHYDROCHLORIDE) [Suspect]
     Active Substance: CETIRIZINE HYDROCHLORIDE
     Indication: SEASONAL ALLERGY
     Route: 048
     Dates: start: 20190514, end: 20190514
  8. SANDOMIGRAN [Concomitant]
     Active Substance: PIZOTYLINE
     Indication: MIGRAINE
     Dosage: LAST TAKEN 11/JUN/2019
     Route: 065
  9. CELEBREX [Concomitant]
     Active Substance: CELECOXIB
     Indication: ARTHRITIS
     Dosage: LAST TAKEN 11/JUN/2019
     Route: 065
  10. CLONAZEPAM. [Concomitant]
     Active Substance: CLONAZEPAM
     Indication: ANXIETY
     Dosage: LAST TAKEN 12/JUN/2019
     Route: 065
  11. AVENTYL [Concomitant]
     Active Substance: NORTRIPTYLINE HYDROCHLORIDE
     Indication: POST-TRAUMATIC STRESS DISORDER
     Dosage: LAST TAKEN 11/JUN/2019
     Route: 065

REACTIONS (4)
  - Heart rate irregular [Recovered/Resolved]
  - Drug ineffective [Unknown]
  - Dyspnoea [Recovered/Resolved]
  - Blood test abnormal [Recovered/Resolved]

NARRATIVE: CASE EVENT DATE: 20190514
